FAERS Safety Report 8722721 (Version 2)
Quarter: 2015Q2

REPORT INFORMATION
  Report Type: Report from Study
  Country: US (occurrence: US)
  Receive Date: 20120814
  Receipt Date: 20150625
  Transmission Date: 20150821
  Serious: Yes (Death)
  Sender: FDA-Public Use
  Company Number: US-ROCHE-1100558

PATIENT
  Age: 22 Year
  Sex: Male

DRUGS (12)
  1. ISOPROTERENOL [Concomitant]
     Active Substance: ISOPROTERENOL
     Route: 065
  2. MIDAZOLAM [Concomitant]
     Active Substance: MIDAZOLAM\MIDAZOLAM HYDROCHLORIDE
     Route: 065
  3. HEPARIN [Concomitant]
     Active Substance: HEPARIN SODIUM
     Dosage: 25 MG PUSH AND THEN 20 MG OVER AN HOUR
     Route: 050
  4. DOPAMINE [Concomitant]
     Active Substance: DOPAMINE\DOPAMINE HYDROCHLORIDE
     Route: 065
  5. DOBUTAMIN [Concomitant]
     Route: 065
  6. SUCCINYLCHOLINE [Concomitant]
     Active Substance: SUCCINYLCHOLINE
     Route: 042
  7. NALOXONE [Concomitant]
     Active Substance: NALOXONE
     Route: 065
  8. ACTIVASE [Suspect]
     Active Substance: ALTEPLASE
     Indication: CARDIO-RESPIRATORY ARREST
     Route: 042
  9. ACTIVASE [Suspect]
     Active Substance: ALTEPLASE
     Indication: PULMONARY EMBOLISM
  10. EPINEPHRINE. [Concomitant]
     Active Substance: EPINEPHRINE
  11. FENTANYL. [Concomitant]
     Active Substance: FENTANYL
     Route: 065
  12. ATROPINE [Concomitant]
     Active Substance: ATROPINE

REACTIONS (2)
  - Cardio-respiratory arrest [Fatal]
  - Aphasia [Unknown]

NARRATIVE: CASE EVENT DATE: 19920203
